FAERS Safety Report 15567123 (Version 1)
Quarter: 2018Q4

REPORT INFORMATION
  Report Type: Report from Study
  Country: US (occurrence: US)
  Receive Date: 20181030
  Receipt Date: 20181030
  Transmission Date: 20190205
  Serious: Yes (Other)
  Sender: FDA-Public Use
  Company Number: US-JNJFOC-20181033179

PATIENT
  Sex: Female

DRUGS (2)
  1. STELARA [Suspect]
     Active Substance: USTEKINUMAB
     Indication: CROHN^S DISEASE
     Dosage: IV INDUCTION PHASE
     Route: 058
     Dates: start: 20180807
  2. STELARA [Suspect]
     Active Substance: USTEKINUMAB
     Indication: CROHN^S DISEASE
     Route: 058
     Dates: start: 20181004

REACTIONS (5)
  - Fatigue [Recovered/Resolved]
  - Skin lesion [Unknown]
  - Subcutaneous abscess [Unknown]
  - Inappropriate schedule of product administration [Unknown]
  - Conjunctivitis [Unknown]

NARRATIVE: CASE EVENT DATE: 2018
